FAERS Safety Report 8836974 (Version 1)
Quarter: 2012Q4

REPORT INFORMATION
  Report Type: Spontaneous
  Country: US (occurrence: None)
  Receive Date: 20121011
  Receipt Date: 20121011
  Transmission Date: 20130627
  Serious: No
  Sender: FDA-Public Use
  Company Number: None

PATIENT
  Age: 74 Year
  Sex: Male
  Weight: 65 kg

DRUGS (1)
  1. CLOTRIMAZOLE [Suspect]
     Indication: FUNGAL INFECTION
     Dosage: EVERY DAY TOP
     Route: 061
     Dates: start: 20120807, end: 20120924

REACTIONS (1)
  - Rash [None]
